FAERS Safety Report 6432744-4 (Version None)
Quarter: 2009Q4

REPORT INFORMATION
  Report Type: 
  Country: None (occurrence: None)
  Receive Date: 20091109
  Receipt Date: 20091105
  Transmission Date: 20100525
  Serious: Yes (Hospitalization)
  Sender: FDA-Public Use
  Company Number: A0815342A

PATIENT
  Age: 69 Year
  Sex: Female
  Weight: 95 kg

DRUGS (26)
  1. ALLI [Suspect]
     Indication: WEIGHT DECREASED
     Route: 048
     Dates: end: 20091102
  2. OXYGEN [Concomitant]
  3. INSULIN [Concomitant]
  4. DIGESTIVE ENZYMES [Concomitant]
  5. AMBIEN [Concomitant]
     Route: 048
  6. SINGULAIR [Concomitant]
     Route: 048
  7. LASIX [Concomitant]
  8. PLAVIX [Concomitant]
  9. POTASSIUM CHLORIDE [Concomitant]
  10. GABAPENTIN [Concomitant]
  11. XANAX [Concomitant]
  12. BUTALBITAL ACETAMINOPHEN AND CAFFEINE [Concomitant]
  13. FLAXSEED OIL [Concomitant]
  14. CHROMIUM PICOLINATE [Concomitant]
  15. ZINC [Concomitant]
  16. MAGNESIUM [Concomitant]
  17. POTASSIUM CHLORIDE [Concomitant]
  18. CO Q 10 [Concomitant]
  19. VITAMIN B COMPLEX CAP [Concomitant]
  20. FOLIC ACID [Concomitant]
  21. ASCORBIC ACID [Concomitant]
  22. VITAMIN A [Concomitant]
  23. VITAMIN B-12 [Concomitant]
  24. CALCIUM + MAGNESIUM [Concomitant]
  25. VITAMIN E [Concomitant]
  26. MELATONIN [Concomitant]

REACTIONS (10)
  - DECREASED APPETITE [None]
  - DIARRHOEA [None]
  - DRUG ADMINISTRATION ERROR [None]
  - DRUG INEFFECTIVE [None]
  - HYPOTENSION [None]
  - MALAISE [None]
  - NAUSEA [None]
  - OESOPHAGEAL SPASM [None]
  - PAIN [None]
  - URTICARIA [None]
